FAERS Safety Report 9822063 (Version 1)
Quarter: 2014Q1

REPORT INFORMATION
  Report Type: Spontaneous
  Country: FR (occurrence: FR)
  Receive Date: 20140116
  Receipt Date: 20140116
  Transmission Date: 20141002
  Serious: Yes (Hospitalization, Other)
  Sender: FDA-Public Use
  Company Number: FR-ASTRAZENECA-2014SE01548

PATIENT
  Age: 66 Year
  Sex: Male

DRUGS (7)
  1. CRESTOR [Suspect]
     Route: 048
     Dates: end: 20130130
  2. KARDEGIC [Concomitant]
  3. CARDENSIEL [Concomitant]
  4. TRIATEC [Concomitant]
  5. INIPOMP [Concomitant]
  6. ZOPICLONE [Concomitant]
  7. LEPONEX [Concomitant]

REACTIONS (6)
  - Pneumonia aspiration [Unknown]
  - Dehydration [Unknown]
  - Renal failure acute [Unknown]
  - Disturbance in attention [Unknown]
  - Hepatocellular injury [Unknown]
  - Rhabdomyolysis [Recovered/Resolved]
